FAERS Safety Report 25535151 (Version 1)
Quarter: 2025Q3

REPORT INFORMATION
  Report Type: Spontaneous
  Country: US (occurrence: None)
  Receive Date: 20250709
  Receipt Date: 20250709
  Transmission Date: 20251020
  Serious: Yes (Other)
  Sender: FDA-CTU
  Company Number: None

PATIENT
  Age: 71 Year
  Sex: Male

DRUGS (1)
  1. VENCLEXTA [Suspect]
     Active Substance: VENETOCLAX
     Dosage: DOSE: 20MG  QD WEEK 1, 50MG QD WEEK 2, 100MG QD ?FREQUENCY: DAILY
     Route: 048

REACTIONS (1)
  - Adverse drug reaction [None]
